FAERS Safety Report 9700751 (Version 1)
Quarter: 2013Q4

REPORT INFORMATION
  Report Type: Report from Study
  Country: NL (occurrence: NL)
  Receive Date: 20131121
  Receipt Date: 20131121
  Transmission Date: 20140711
  Serious: Yes (Hospitalization, Other)
  Sender: FDA-Public Use
  Company Number: PHHY2013NL132734

PATIENT
  Age: 47 Year
  Sex: Female

DRUGS (3)
  1. ZOMETA [Suspect]
     Indication: BREAST CANCER METASTATIC
     Dosage: 4MG/100ML, ONCE EVERY 4 WEEKS
     Route: 042
  2. ZOMETA [Suspect]
     Dosage: 4MG/100ML, ONCE EVERY 4 WEEKS
     Route: 042
     Dates: start: 20130314
  3. ZOMETA [Suspect]
     Dosage: 4MG/100ML, ONCE EVERY 4 WEEKS
     Route: 042
     Dates: start: 20131022

REACTIONS (3)
  - Pulmonary oedema [Not Recovered/Not Resolved]
  - Hypertension [Not Recovered/Not Resolved]
  - Tachycardia [Not Recovered/Not Resolved]
